FAERS Safety Report 21202114 (Version 1)
Quarter: 2022Q3

REPORT INFORMATION
  Report Type: Spontaneous
  Country: US (occurrence: US)
  Receive Date: 20220811
  Receipt Date: 20220811
  Transmission Date: 20221027
  Serious: No
  Sender: FDA-Public Use
  Company Number: US-ANIPHARMA-2022-US-018257

PATIENT
  Age: 59 Year
  Sex: Male
  Weight: 108.86 kg

DRUGS (1)
  1. CORTICOTROPIN [Suspect]
     Active Substance: CORTICOTROPIN
     Indication: Product used for unknown indication
     Dosage: 2 INJECTIONS WEEKLY, THEN, 1 INJECTION WEEKLY
     Route: 058
     Dates: start: 202205

REACTIONS (2)
  - Muscle spasms [Recovered/Resolved]
  - Restless legs syndrome [Recovering/Resolving]

NARRATIVE: CASE EVENT DATE: 20220601
